FAERS Safety Report 8317328-5 (Version None)
Quarter: 2012Q2

REPORT INFORMATION
  Report Type: 
  Country: None (occurrence: None)
  Receive Date: 20120427
  Receipt Date: 20120419
  Transmission Date: 20120825
  Serious: Yes (Hospitalization, Other)
  Sender: FDA-Public Use
  Company Number: JP-ASTELLAS-2012JP003469

PATIENT
  Age: 50 Year
  Sex: Male

DRUGS (4)
  1. PROGRAF [Suspect]
     Indication: MYOPATHY
     Dosage: 3 MG, UNKNOWN/D
     Route: 065
  2. PREDNISOLONE [Concomitant]
     Indication: MYOPATHY
     Dosage: 40 MG, UNKNOWN/D
     Route: 048
  3. PROGRAF [Suspect]
     Indication: IMMUNOSUPPRESSANT DRUG THERAPY
  4. PREDNISOLONE [Concomitant]
     Route: 048

REACTIONS (3)
  - OFF LABEL USE [None]
  - BRAIN ABSCESS [None]
  - PNEUMONIA ASPIRATION [None]
